FAERS Safety Report 16061544 (Version 1)
Quarter: 2019Q1

REPORT INFORMATION
  Report Type: Spontaneous
  Country: US (occurrence: US)
  Receive Date: 20190312
  Receipt Date: 20190312
  Transmission Date: 20190418
  Serious: No
  Sender: FDA-Public Use
  Company Number: US-PFIZER INC-2017196640

PATIENT
  Age: 33 Year
  Sex: Female

DRUGS (22)
  1. OMEPRAZOLE. [Concomitant]
     Active Substance: OMEPRAZOLE
     Indication: GASTROOESOPHAGEAL REFLUX DISEASE
     Dosage: 20 MG, ONCE A DAY
     Route: 048
  2. LYRICA [Suspect]
     Active Substance: PREGABALIN
     Indication: CLUSTER HEADACHE
     Dosage: 100 MG, ONCE A DAY
     Route: 048
     Dates: start: 20170518
  3. OMEPRAZOLE. [Concomitant]
     Active Substance: OMEPRAZOLE
     Dosage: 20 MG, 1X/DAY (BEDTIME)
     Route: 048
  4. ATORVASTATIN [Concomitant]
     Active Substance: ATORVASTATIN
     Indication: BLOOD CHOLESTEROL ABNORMAL
     Dosage: 20 MG, ONCE A DAY (AT NIGHT)
     Route: 048
  5. IMITREX [Concomitant]
     Active Substance: SUMATRIPTAN SUCCINATE
     Dosage: UNK
  6. AMITRIPTYLINE [Concomitant]
     Active Substance: AMITRIPTYLINE
     Dosage: UNK
  7. NORTRIPTYLINE [Concomitant]
     Active Substance: NORTRIPTYLINE
     Dosage: UNK
  8. BOTOX [Concomitant]
     Active Substance: ONABOTULINUMTOXINA
     Dosage: UNK
  9. ZOLPIDEM TARTRATE. [Concomitant]
     Active Substance: ZOLPIDEM TARTRATE
     Dosage: UNK, 1X/DAY (1/2 ORAL AT BEDTIME)
     Route: 048
  10. LYRICA [Suspect]
     Active Substance: PREGABALIN
     Dosage: 100 MG, 3X/DAY (1 CAPSULE THREE TIMES DAILY)
     Route: 048
  11. METFORMIN [Concomitant]
     Active Substance: METFORMIN HYDROCHLORIDE
     Indication: GLUCOSE TOLERANCE IMPAIRED
     Dosage: 500 MG, TWICE A DAY
     Route: 048
  12. TOPAMAX [Concomitant]
     Active Substance: TOPIRAMATE
     Dosage: UNK
  13. CLONAZEPAM. [Concomitant]
     Active Substance: CLONAZEPAM
     Dosage: 0.5 MG, AS NEEDED (TWO TIMES DAILY)
     Route: 048
  14. GABAPENTIN. [Concomitant]
     Active Substance: GABAPENTIN
     Dosage: UNK
  15. SYMBICORT [Concomitant]
     Active Substance: BUDESONIDE\FORMOTEROL FUMARATE DIHYDRATE
     Dosage: UNK, 2X/DAY [BUDESONIDE: 80 MCG]/[FORMOTEROL FUMARATE DEHYDRATE: 4.5 MCG]
  16. ONDANSETRON [Concomitant]
     Active Substance: ONDANSETRON
     Dosage: 4 MG, AS NEEDED
     Route: 048
  17. LYRICA [Suspect]
     Active Substance: PREGABALIN
     Dosage: 100 MG, TWICE A DAY
     Route: 048
  18. STRATTERA [Concomitant]
     Active Substance: ATOMOXETINE HYDROCHLORIDE
     Indication: ATTENTION DEFICIT/HYPERACTIVITY DISORDER
     Dosage: 60 MG, 1X/DAY
     Route: 048
     Dates: start: 2016
  19. ALBUTEROL SULFATE. [Concomitant]
     Active Substance: ALBUTEROL SULFATE
     Dosage: UNK, AS NEEDED (2.5MG/3ML, INHALATION)
  20. LYRICA [Suspect]
     Active Substance: PREGABALIN
     Indication: MIGRAINE WITHOUT AURA
     Dosage: 100 MG, TWICE A DAY
     Route: 048
  21. PREDNISONE. [Concomitant]
     Active Substance: PREDNISONE
     Dosage: UNK
  22. VENTOLIN HFA [Concomitant]
     Active Substance: ALBUTEROL SULFATE
     Dosage: UNK, AS NEEDED

REACTIONS (1)
  - Drug effective for unapproved indication [Unknown]
